FAERS Safety Report 12717977 (Version 3)
Quarter: 2016Q4

REPORT INFORMATION
  Report Type: Spontaneous
  Country: CN (occurrence: CN)
  Receive Date: 20160906
  Receipt Date: 20161019
  Transmission Date: 20170207
  Serious: Yes (Other)
  Sender: FDA-Public Use
  Company Number: CN-SA-2016SA159300

PATIENT
  Age: 35 Year
  Sex: Female
  Weight: 55 kg

DRUGS (3)
  1. BAYASPIRIN [Concomitant]
     Active Substance: ASPIRIN
     Indication: PROPHYLAXIS
     Route: 048
     Dates: start: 20160724
  2. CRESTOR [Concomitant]
     Active Substance: ROSUVASTATIN CALCIUM
     Indication: HYPERLIPIDAEMIA
     Route: 048
     Dates: start: 20160724
  3. PLAVIX [Suspect]
     Active Substance: CLOPIDOGREL BISULFATE
     Indication: PROPHYLAXIS
     Route: 048
     Dates: start: 20160724

REACTIONS (8)
  - Pulmonary valve incompetence [Unknown]
  - Product counterfeit [Unknown]
  - Cardiac failure congestive [Unknown]
  - Chest pain [Recovered/Resolved]
  - Mitral valve incompetence [Unknown]
  - Cardiomyopathy [Unknown]
  - Palpitations [Recovered/Resolved]
  - Aortic arteriosclerosis [Unknown]

NARRATIVE: CASE EVENT DATE: 20160814
